FAERS Safety Report 24028104 (Version 1)
Quarter: 2024Q2

REPORT INFORMATION
  Report Type: Report from Study
  Country: US (occurrence: US)
  Receive Date: 20240628
  Receipt Date: 20240628
  Transmission Date: 20240716
  Serious: Yes (Disabling, Other)
  Sender: FDA-Public Use
  Company Number: US-ROCHE-10000008855

PATIENT
  Age: 72 Year
  Sex: Female
  Weight: 97.07 kg

DRUGS (16)
  1. ACTEMRA [Suspect]
     Active Substance: TOCILIZUMAB
     Indication: Arteritis
     Route: 042
     Dates: start: 2022
  2. CRESTOR [Concomitant]
     Active Substance: ROSUVASTATIN CALCIUM
     Route: 048
     Dates: start: 2021
  3. FOSAMAX [Concomitant]
     Active Substance: ALENDRONATE SODIUM
     Route: 048
     Dates: start: 2022
  4. SPIRONOLACTONE [Concomitant]
     Active Substance: SPIRONOLACTONE
     Route: 048
     Dates: start: 2023
  5. TOPIRAMATE [Concomitant]
     Active Substance: TOPIRAMATE
     Indication: Migraine
     Route: 048
     Dates: start: 2023
  6. TOPIRAMATE [Concomitant]
     Active Substance: TOPIRAMATE
     Indication: Headache
  7. VALSARTAN [Concomitant]
     Active Substance: VALSARTAN
     Route: 048
     Dates: start: 2023
  8. LASIX [Concomitant]
     Active Substance: FUROSEMIDE
     Indication: Fluid retention
     Dates: start: 202405
  9. METOPROLOL SUCCINATE [Concomitant]
     Active Substance: METOPROLOL SUCCINATE
  10. FARXIGA [Concomitant]
     Active Substance: DAPAGLIFLOZIN PROPANEDIOL
  11. AMOXICILLIN [Concomitant]
     Active Substance: AMOXICILLIN
  12. VITAMIN D3 [Concomitant]
     Active Substance: CHOLECALCIFEROL
  13. TYLENOL [Concomitant]
     Active Substance: ACETAMINOPHEN
  14. NITROGLYCERIN [Concomitant]
     Active Substance: NITROGLYCERIN
  15. COSOPT [Concomitant]
     Active Substance: DORZOLAMIDE HYDROCHLORIDE\TIMOLOL MALEATE
  16. LATANOPROST [Concomitant]
     Active Substance: LATANOPROST

REACTIONS (5)
  - COVID-19 [Recovered/Resolved]
  - Cardiac failure congestive [Recovered/Resolved]
  - Aortic aneurysm [Not Recovered/Not Resolved]
  - Bronchitis [Recovered/Resolved]
  - Osteopenia [Recovered/Resolved with Sequelae]

NARRATIVE: CASE EVENT DATE: 20230101
